FAERS Safety Report 23812003 (Version 1)
Quarter: 2024Q2

REPORT INFORMATION
  Report Type: Spontaneous
  Country: US (occurrence: US)
  Receive Date: 20240503
  Receipt Date: 20240503
  Transmission Date: 20240716
  Serious: No
  Sender: FDA-Public Use
  Company Number: US-UCBSA-2023030621

PATIENT
  Sex: Male

DRUGS (1)
  1. CIMZIA [Suspect]
     Active Substance: CERTOLIZUMAB PEGOL
     Indication: Psoriasis
     Dosage: 200 MILLIGRAM PER MILLILITRE, OTHER
     Route: 058
     Dates: start: 20230509

REACTIONS (3)
  - Psoriasis [Unknown]
  - Fatigue [Unknown]
  - Rhinorrhoea [Unknown]
